FAERS Safety Report 16599420 (Version 1)
Quarter: 2019Q3

REPORT INFORMATION
  Report Type: Spontaneous
  Country: FR (occurrence: FR)
  Receive Date: 20190719
  Receipt Date: 20190719
  Transmission Date: 20191004
  Serious: Yes (Other)
  Sender: FDA-Public Use
  Company Number: FR-AMGEN-FRASP2019113210

PATIENT
  Age: 72 Year
  Sex: Female

DRUGS (12)
  1. KYPROLIS [Suspect]
     Active Substance: CARFILZOMIB
     Dosage: 20 MILLIGRAM/SQ. METER (35 MILLIGRAM), DAY 1 AND 2 OF CYCLE ONE (10 MILLIGRAM)
     Route: 065
     Dates: start: 201905, end: 20190529
  2. KYPROLIS [Suspect]
     Active Substance: CARFILZOMIB
     Dosage: 56 MILLIGRAM/SQ. METER (96 MILLIGRAM) DAY 8 AND 9 OF CYCLE 1 (10 MILLIGRAM)
     Route: 065
     Dates: start: 201906, end: 201906
  3. KYPROLIS [Suspect]
     Active Substance: CARFILZOMIB
     Dosage: 56 MILLIGRAM/SQ. METER (96 MILLIGRAM) DAY 8 AND 9 OF CYCLE 1 (30 MILLIGRAM)
     Route: 065
     Dates: start: 201906, end: 201906
  4. KYPROLIS [Suspect]
     Active Substance: CARFILZOMIB
     Indication: PLASMA CELL MYELOMA
     Dosage: 20 MILLIGRAM/SQ. METER (35 MILLIGRAM), DAY 1 AND 2 OF CYCLE ONE (30 MILLIGRAM)
     Route: 065
     Dates: start: 20190528, end: 201905
  5. KYPROLIS [Suspect]
     Active Substance: CARFILZOMIB
     Dosage: UNK, DAY 1 AND 2 OF CYCLE TWO (10 MILLIGRAM)
     Route: 065
     Dates: start: 201907
  6. KYPROLIS [Suspect]
     Active Substance: CARFILZOMIB
     Dosage: UNK, DAY 1 AND 2 OF CYCLE TWO (60 MILLIGRAM)
     Route: 065
     Dates: start: 20190704, end: 201907
  7. KYPROLIS [Suspect]
     Active Substance: CARFILZOMIB
     Dosage: UNK, DAY 1 AND 2 OF CYCLE TWO (10 MILLIGRAM VIAL)
     Route: 065
     Dates: start: 201907, end: 201907
  8. DEXAMETHASONE. [Concomitant]
     Active Substance: DEXAMETHASONE
     Indication: PLASMA CELL MYELOMA
     Dosage: UNK
     Dates: start: 20190528
  9. KYPROLIS [Suspect]
     Active Substance: CARFILZOMIB
     Dosage: 56 MILLIGRAM/SQ. METER (96 MILLIGRAM) DAY 8 AND 9 OF CYCLE 1 (30 MILLIGRAM)
     Route: 065
     Dates: start: 201906, end: 201906
  10. KYPROLIS [Suspect]
     Active Substance: CARFILZOMIB
     Dosage: UNK, DAY 1 AND 2 OF CYCLE TWO (60 MILLIGRAM)
     Route: 065
     Dates: start: 201907, end: 201907
  11. KYPROLIS [Suspect]
     Active Substance: CARFILZOMIB
     Dosage: UNK, DAY 1 AND 2 OF CYCLE TWO (30 MILLIGRAM)
     Route: 065
     Dates: start: 201907, end: 201907
  12. KYPROLIS [Suspect]
     Active Substance: CARFILZOMIB
     Dosage: 56 MILLIGRAM/SQ. METER (96 MILLIGRAM) DAY 8 AND 9 OF CYCLE 1 (60 MILLIGRAM)
     Route: 065
     Dates: start: 201906, end: 201906

REACTIONS (3)
  - Pyrexia [Unknown]
  - Shock [Unknown]
  - Plasma cell myeloma [Unknown]

NARRATIVE: CASE EVENT DATE: 2019
